FAERS Safety Report 23468708 (Version 1)
Quarter: 2024Q1

REPORT INFORMATION
  Report Type: Spontaneous
  Country: US (occurrence: None)
  Receive Date: 20240201
  Receipt Date: 20240201
  Transmission Date: 20240410
  Serious: No
  Sender: FDA-Public Use
  Company Number: None

PATIENT
  Age: 59 Year
  Sex: Male
  Weight: 121.5 kg

DRUGS (2)
  1. OZEMPIC [Suspect]
     Active Substance: SEMAGLUTIDE
     Indication: Type 2 diabetes mellitus
     Dosage: OTHER FREQUENCY : WEEKLY;?
     Route: 058
     Dates: start: 20231001, end: 20240131
  2. ASPIRIN [Concomitant]
     Active Substance: ASPIRIN

REACTIONS (9)
  - Depression [None]
  - Hypoglycaemia [None]
  - Abdominal distension [None]
  - Flatulence [None]
  - Nausea [None]
  - Vomiting [None]
  - Mood swings [None]
  - Thyroid mass [None]
  - Insomnia [None]

NARRATIVE: CASE EVENT DATE: 20240131
